FAERS Safety Report 4551741-7 (Version None)
Quarter: 2005Q1

REPORT INFORMATION
  Report Type: 
  Country: None (occurrence: None)
  Receive Date: 20050113
  Receipt Date: 20041104
  Transmission Date: 20050727
  Serious: Yes (Other)
  Sender: FDA-Public Use
  Company Number: US-GLAXOSMITHKLINE-A0532725A

PATIENT
  Age: 68 Year
  Sex: Female

DRUGS (17)
  1. REQUIP [Suspect]
     Route: 048
     Dates: start: 20040813
  2. HYDROCHLOROTHIAZIDE [Suspect]
     Dosage: .5TAB PER DAY
  3. PRINZIDE [Concomitant]
  4. EFFEXOR [Concomitant]
  5. ASPIRIN [Concomitant]
  6. CALCIUM GLUCONATE [Concomitant]
  7. M.V.I. [Concomitant]
  8. MAGNESIUM [Concomitant]
  9. CARDIZEM [Concomitant]
  10. ALLERGY SHOTS [Concomitant]
  11. VITAMIN B12 INJECTION [Concomitant]
  12. NEBULIZER TREATMENT [Concomitant]
  13. MAXAIR [Concomitant]
  14. FLOVENT [Concomitant]
  15. PREDNISONE [Concomitant]
  16. LEVAQUIN [Concomitant]
  17. IPRATROPIUM BROMIDE [Concomitant]

REACTIONS (16)
  - BLOOD POTASSIUM DECREASED [None]
  - CHEST DISCOMFORT [None]
  - COUGH [None]
  - DYSPNOEA [None]
  - DYSPNOEA EXERTIONAL [None]
  - FEELING ABNORMAL [None]
  - FLUID RETENTION [None]
  - HEART RATE INCREASED [None]
  - HYPERTENSION [None]
  - MEDICATION ERROR [None]
  - PULSE ABNORMAL [None]
  - RESPIRATORY TRACT CONGESTION [None]
  - SINUSITIS [None]
  - SOMNOLENCE [None]
  - URINARY INCONTINENCE [None]
  - WHEEZING [None]
